FAERS Safety Report 21657194 (Version 1)
Quarter: 2022Q4

REPORT INFORMATION
  Report Type: Spontaneous
  Country: FR (occurrence: FR)
  Receive Date: 20221129
  Receipt Date: 20221129
  Transmission Date: 20230113
  Serious: Yes (Hospitalization)
  Sender: FDA-Public Use
  Company Number: None

PATIENT
  Age: 78 Year
  Sex: Male
  Weight: 71 kg

DRUGS (9)
  1. MOXIFLOXACIN [Suspect]
     Active Substance: MOXIFLOXACIN
     Indication: Bone tuberculosis
     Dosage: 400 MILLIGRAM, QD
     Route: 048
     Dates: start: 20220715, end: 20220724
  2. RIFATER [Concomitant]
     Active Substance: ISONIAZID\PYRAZINAMIDE\RIFAMPIN
     Dosage: 6 DOSAGE FORM, QD
     Route: 048
     Dates: start: 20220615, end: 20220715
  3. AMLODIPINE [Concomitant]
     Active Substance: AMLODIPINE BESYLATE
     Dosage: 1 DOSAGE FORM, QD
     Route: 048
  4. ETHAMBUTOL [Concomitant]
     Active Substance: ETHAMBUTOL HYDROCHLORIDE
     Dosage: 1000 MILLIGRAM, QD
     Route: 048
     Dates: start: 20220615, end: 20220725
  5. PYRAZINAMIDE [Concomitant]
     Active Substance: PYRAZINAMIDE
     Dosage: 2000 MILLIGRAM, QD
     Route: 048
     Dates: start: 20220715, end: 20220725
  6. RIFAMPIN [Concomitant]
     Active Substance: RIFAMPIN
     Dosage: 600 MILLIGRAM, QD
     Route: 048
     Dates: start: 20220715, end: 20220725
  7. ACETAMINOPHEN [Concomitant]
     Active Substance: ACETAMINOPHEN
     Dosage: 4 GRAM, QD
     Route: 048
  8. LEVOTHYROXINE SODIUM [Concomitant]
     Active Substance: LEVOTHYROXINE SODIUM
     Dosage: 1 DOSAGE FORM, QD
     Route: 048
  9. ACETAMINOPHEN\OPIUM [Concomitant]
     Active Substance: ACETAMINOPHEN\OPIUM
     Dosage: 3 DOSAGE FORM, QD
     Route: 048

REACTIONS (1)
  - Acute generalised exanthematous pustulosis [Recovered/Resolved]

NARRATIVE: CASE EVENT DATE: 20220718
